FAERS Safety Report 5087872-5 (Version None)
Quarter: 2006Q3

REPORT INFORMATION
  Report Type: 
  Country: None (occurrence: None)
  Receive Date: 20060821
  Receipt Date: 20060821
  Transmission Date: 20061208
  Serious: Yes (Hospitalization)
  Sender: FDA-Public Use
  Company Number: None

PATIENT
  Age: 45 Year
  Sex: Female
  Weight: 71.6683 kg

DRUGS (1)
  1. CEPHALEXIN [Suspect]
     Indication: ORAL INFECTION
     Dosage: 500 MG    4 DAILY X 7     DENTAL
     Route: 004
     Dates: start: 20060819, end: 20060819

REACTIONS (1)
  - ANAPHYLACTIC REACTION [None]
